FAERS Safety Report 10086524 (Version 1)
Quarter: 2014Q2

REPORT INFORMATION
  Report Type: Spontaneous
  Country: US (occurrence: US)
  Receive Date: 20140418
  Receipt Date: 20140418
  Transmission Date: 20141212
  Serious: No
  Sender: FDA-Public Use
  Company Number: US-PFIZER INC-2014106771

PATIENT
  Age: 61 Year
  Sex: Female
  Weight: 69.84 kg

DRUGS (8)
  1. LYRICA [Suspect]
     Indication: FIBROMYALGIA
     Dosage: 75 MG, 3X/DAY
     Dates: start: 2013
  2. LYRICA [Suspect]
     Indication: OSTEOARTHRITIS
  3. TECFIDERA [Concomitant]
     Indication: MULTIPLE SCLEROSIS
     Dosage: 240 MG, 2X/DAY
  4. WELLBUTRIN [Concomitant]
     Dosage: 100 MG, DAILY
  5. ALEVE [Concomitant]
     Indication: INFLAMMATION
     Dosage: 220 MG, EVERY 12 HOURS
  6. LAMICTAL [Concomitant]
     Indication: BIPOLAR DISORDER
     Dosage: 150 MG, DAILY
  7. ABILIFY [Concomitant]
     Indication: BIPOLAR DISORDER
     Dosage: 10 MG, DAILY
  8. OXAZEPAM [Concomitant]
     Indication: TREMOR
     Dosage: 30 MG, 3X/DAY

REACTIONS (1)
  - Drug ineffective [Unknown]
